FAERS Safety Report 18535947 (Version 1)
Quarter: 2020Q4

REPORT INFORMATION
  Report Type: Spontaneous
  Country: JP (occurrence: JP)
  Receive Date: 20201123
  Receipt Date: 20201123
  Transmission Date: 20210114
  Serious: Yes (Death, Hospitalization)
  Sender: FDA-Public Use
  Company Number: JP-CELGENEUS-JPN-20200702308

PATIENT
  Age: 56 Year
  Sex: Male

DRUGS (4)
  1. GEMCITABINE. [Concomitant]
     Active Substance: GEMCITABINE
     Dosage: 60% OF THE DOSE, ON DAYS 1 AND 15
     Route: 041
  2. GEMCITABINE. [Concomitant]
     Active Substance: GEMCITABINE
     Indication: PANCREATIC CARCINOMA METASTATIC
     Route: 041
  3. ABRAXANE [Suspect]
     Active Substance: PACLITAXEL
     Indication: PANCREATIC CARCINOMA METASTATIC
     Route: 041
  4. ABRAXANE [Suspect]
     Active Substance: PACLITAXEL
     Dosage: 60% OF THE DOSE, ON DAYS 1 AND 15
     Route: 041

REACTIONS (3)
  - Pancreatic carcinoma [Fatal]
  - Neutrophil count decreased [Unknown]
  - Platelet count decreased [Unknown]
